FAERS Safety Report 15645128 (Version 6)
Quarter: 2021Q1

REPORT INFORMATION
  Report Type: Report from Study
  Country: US (occurrence: US)
  Receive Date: 20181121
  Receipt Date: 20210331
  Transmission Date: 20210419
  Serious: No
  Sender: FDA-Public Use
  Company Number: PHEH2018US048623

PATIENT
  Sex: Male

DRUGS (3)
  1. COSENTYX [Suspect]
     Active Substance: SECUKINUMAB
     Indication: PSORIASIS
     Dosage: 300 MG, QMO
     Route: 058
  2. COSENTYX [Suspect]
     Active Substance: SECUKINUMAB
     Indication: PSORIATIC ARTHROPATHY
     Dosage: UNK UNK, QMO
     Route: 058
  3. COSENTYX [Suspect]
     Active Substance: SECUKINUMAB
     Dosage: 300 MG, ONCE WEEKLY FOR 5 WEEKS (LOADING), THEN ONCE EVERY 4 WEEKS (MAINTENANCE)
     Route: 058
     Dates: start: 20200804

REACTIONS (7)
  - Arthralgia [Not Recovered/Not Resolved]
  - Meniscus injury [Unknown]
  - Therapeutic product effect incomplete [Unknown]
  - Pain [Unknown]
  - Arthritis [Unknown]
  - Feeling abnormal [Unknown]
  - Therapeutic response shortened [Unknown]
